FAERS Safety Report 9417027 (Version 1)
Quarter: 2013Q3

REPORT INFORMATION
  Report Type: Spontaneous
  Country: US (occurrence: US)
  Receive Date: 20130724
  Receipt Date: 20130724
  Transmission Date: 20140515
  Serious: Yes (Other)
  Sender: FDA-Public Use
  Company Number: US-TEVA-420554USA

PATIENT
  Age: 44 Year
  Sex: Female
  Weight: 70.37 kg

DRUGS (1)
  1. PARAGARD 380A [Suspect]
     Indication: CONTRACEPTION
     Route: 015
     Dates: start: 20111119, end: 20130717

REACTIONS (2)
  - Medical device complication [Not Recovered/Not Resolved]
  - Device expulsion [Recovered/Resolved]
